FAERS Safety Report 8877378 (Version 1)
Quarter: 2012Q4

REPORT INFORMATION
  Report Type: 
  Country: US (occurrence: US)
  Receive Date: 20121023
  Receipt Date: 20121023
  Transmission Date: 20130627
  Serious: Yes (Hospitalization)
  Sender: FDA-Public Use
  Company Number: US-AMGEN-USASP2012056984

PATIENT
  Sex: Male
  Weight: 89.55 kg

DRUGS (7)
  1. ENBREL [Suspect]
     Indication: PSORIASIS
     Dosage: 50 mg, qwk
     Route: 058
     Dates: start: 20120801
  2. CYCLOSPORIN [Concomitant]
     Dosage: 25 mg, UNK
  3. MAGNESIUM [Concomitant]
     Dosage: 30 mg, UNK
  4. JANUVIA [Concomitant]
     Dosage: 25 mg, UNK
  5. ACARBOSE [Concomitant]
     Dosage: 25 mg, UNK
  6. LOVASTATIN [Concomitant]
     Dosage: 20 mg, UNK
  7. ACTOS [Concomitant]
     Dosage: 15 mg, UNK

REACTIONS (1)
  - Psoriasis [Unknown]
